FAERS Safety Report 8733010 (Version 2)
Quarter: 2012Q4

REPORT INFORMATION
  Report Type: 
  Country: US (occurrence: US)
  Receive Date: 20120820
  Receipt Date: 20120911
  Transmission Date: 20130627
  Serious: Yes (Other)
  Sender: FDA-Public Use
  Company Number: CHPA2012US017917

PATIENT
  Age: 52 Year
  Sex: Female

DRUGS (1)
  1. EXCEDRIN EXTRA STRENGTH [Suspect]
     Dosage: 2 pills PRN
     Route: 048

REACTIONS (3)
  - Lymphoedema [Not Recovered/Not Resolved]
  - Infection [Unknown]
  - Wrong technique in drug usage process [Unknown]
